APPROVED DRUG PRODUCT: VIRAMUNE XR
Active Ingredient: NEVIRAPINE
Strength: 400MG
Dosage Form/Route: TABLET, EXTENDED RELEASE;ORAL
Application: N201152 | Product #001
Applicant: BOEHRINGER INGELHEIM PHARMACEUTICALS INC
Approved: Mar 25, 2011 | RLD: Yes | RS: No | Type: DISCN

PATENTS:
Patent 8460704 | Expires: Mar 12, 2029